FAERS Safety Report 15507091 (Version 1)
Quarter: 2018Q4

REPORT INFORMATION
  Report Type: Spontaneous
  Country: US (occurrence: US)
  Receive Date: 20181016
  Receipt Date: 20181016
  Transmission Date: 20190205
  Serious: Yes (Other)
  Sender: FDA-Public Use
  Company Number: US-CURIUM PHARMACEUTICALS-199700032

PATIENT
  Sex: Male

DRUGS (1)
  1. THALLOUS CHLORIDE TL 201 [Suspect]
     Active Substance: THALLOUS CHLORIDE TL-201
     Indication: SCAN MYOCARDIAL PERFUSION
     Route: 042
     Dates: start: 19970201, end: 19970201

REACTIONS (6)
  - Hyperhidrosis [Unknown]
  - Hyperventilation [Unknown]
  - Dyspnoea [Unknown]
  - Pallor [Unknown]
  - Salivary hypersecretion [Unknown]
  - Seizure [Unknown]

NARRATIVE: CASE EVENT DATE: 19970201
